FAERS Safety Report 19955990 (Version 6)
Quarter: 2024Q2

REPORT INFORMATION
  Report Type: Report from Study
  Country: US (occurrence: US)
  Receive Date: 20211014
  Receipt Date: 20240603
  Transmission Date: 20240716
  Serious: No
  Sender: FDA-Public Use
  Company Number: NVSC2021US234423

PATIENT
  Sex: Female

DRUGS (1)
  1. COSENTYX [Suspect]
     Active Substance: SECUKINUMAB
     Indication: Product used for unknown indication
     Dosage: 150 MG, QMO
     Route: 042

REACTIONS (4)
  - COVID-19 [Unknown]
  - Feeling abnormal [Unknown]
  - Cough [Unknown]
  - Incorrect route of product administration [Unknown]
